FAERS Safety Report 11157522 (Version 1)
Quarter: 2015Q2

REPORT INFORMATION
  Report Type: Spontaneous
  Country: US (occurrence: US)
  Receive Date: 20150603
  Receipt Date: 20150603
  Transmission Date: 20150821
  Serious: No
  Sender: FDA-Public Use
  Company Number: US-009507513-1506USA001403

PATIENT
  Sex: Female
  Weight: 54.42 kg

DRUGS (1)
  1. NEXPLANON [Suspect]
     Active Substance: ETONOGESTREL
     Indication: CONTRACEPTION
     Dosage: UNK,ROUTE LEFT ARM,DOSE/FREQUENCY-3YEARS
     Route: 059
     Dates: start: 20130918

REACTIONS (2)
  - Haemorrhage [Unknown]
  - Muscle spasms [Unknown]
